FAERS Safety Report 20563871 (Version 2)
Quarter: 2022Q2

REPORT INFORMATION
  Report Type: Spontaneous
  Country: BE (occurrence: BE)
  Receive Date: 20220308
  Receipt Date: 20220413
  Transmission Date: 20220721
  Serious: Yes (Life-Threatening, Hospitalization)
  Sender: FDA-Public Use
  Company Number: BE-Accord-255190

PATIENT
  Age: 51 Year
  Sex: Male
  Weight: 96.1 kg

DRUGS (56)
  1. DEXAMETHASONE SODIUM PHOSPHATE [Suspect]
     Active Substance: DEXAMETHASONE SODIUM PHOSPHATE
     Indication: Product used for unknown indication
     Dosage: SINGLE
     Route: 042
     Dates: start: 20210406, end: 20210409
  2. DEXAMETHASONE SODIUM PHOSPHATE [Suspect]
     Active Substance: DEXAMETHASONE SODIUM PHOSPHATE
     Dosage: SINGLE
     Route: 042
     Dates: start: 20210503, end: 20210505
  3. DEXAMETHASONE SODIUM PHOSPHATE [Suspect]
     Active Substance: DEXAMETHASONE SODIUM PHOSPHATE
     Dosage: SINGLE
     Route: 042
     Dates: start: 20210503, end: 20210506
  4. DEXAMETHASONE SODIUM PHOSPHATE [Suspect]
     Active Substance: DEXAMETHASONE SODIUM PHOSPHATE
     Dosage: SINGLE
     Route: 042
     Dates: start: 20210505, end: 20210505
  5. DEXAMETHASONE SODIUM PHOSPHATE [Suspect]
     Active Substance: DEXAMETHASONE SODIUM PHOSPHATE
     Dosage: SINGLE
     Route: 042
     Dates: start: 20210617, end: 20210620
  6. CYTARABINE [Suspect]
     Active Substance: CYTARABINE
     Indication: Product used for unknown indication
     Dosage: SINGLE
     Route: 042
     Dates: start: 20210504, end: 20210504
  7. CYTARABINE [Suspect]
     Active Substance: CYTARABINE
     Dosage: SINGLE
     Route: 042
     Dates: start: 20210617, end: 20210617
  8. CYTARABINE [Suspect]
     Active Substance: CYTARABINE
     Dosage: SINGLE
     Route: 042
     Dates: start: 20210503, end: 20210503
  9. CYTARABINE [Suspect]
     Active Substance: CYTARABINE
     Dosage: SINGLE
     Route: 042
     Dates: start: 20210407, end: 20210407
  10. CYTARABINE [Suspect]
     Active Substance: CYTARABINE
     Dosage: SINGLE
     Route: 042
     Dates: start: 20210618, end: 20210618
  11. CYTARABINE [Suspect]
     Active Substance: CYTARABINE
     Dosage: SINGLE
     Route: 042
     Dates: start: 20210406, end: 20210406
  12. CARBOPLATIN [Suspect]
     Active Substance: CARBOPLATIN
     Indication: Product used for unknown indication
     Dosage: UNKNOWN
     Route: 042
  13. EPCORITAMAB [Suspect]
     Active Substance: EPCORITAMAB
     Indication: Product used for unknown indication
     Dosage: PRIMING DOSE, SINGLE
     Route: 058
     Dates: start: 20210406, end: 20210406
  14. EPCORITAMAB [Suspect]
     Active Substance: EPCORITAMAB
     Dosage: FULL DOSE, SINGLE
     Route: 058
     Dates: start: 20210426, end: 20210701
  15. EPCORITAMAB [Suspect]
     Active Substance: EPCORITAMAB
     Dosage: INTERMEDIATE DOSE, SINGLE
     Route: 058
     Dates: start: 20210412, end: 20210412
  16. RITUXIMAB [Suspect]
     Active Substance: RITUXIMAB
     Indication: Product used for unknown indication
     Dosage: SINGLE
     Route: 042
     Dates: start: 20210617, end: 20210617
  17. RITUXIMAB [Suspect]
     Active Substance: RITUXIMAB
     Dosage: SINGLE
     Route: 042
     Dates: start: 20210406, end: 20210406
  18. RITUXIMAB [Suspect]
     Active Substance: RITUXIMAB
     Dosage: SINGLE
     Route: 042
     Dates: start: 20210503, end: 20210503
  19. MORPHINE [Concomitant]
     Active Substance: MORPHINE
     Indication: Product used for unknown indication
     Dates: start: 20210824
  20. PIPERACILLIN SODIUM\TAZOBACTAM SODIUM [Concomitant]
     Active Substance: PIPERACILLIN SODIUM\TAZOBACTAM SODIUM
     Indication: Product used for unknown indication
     Dates: start: 20210806
  21. VITAMIN A PALMITATE [Concomitant]
     Active Substance: VITAMIN A PALMITATE
     Indication: Product used for unknown indication
     Dates: start: 20210406
  22. VANCOMYCIN [Concomitant]
     Active Substance: VANCOMYCIN
     Indication: Product used for unknown indication
     Dates: start: 20210825, end: 20210826
  23. TRAMADOL [Concomitant]
     Active Substance: TRAMADOL
     Indication: Product used for unknown indication
     Dates: start: 20210812, end: 20210825
  24. ALANINE, ARGININE, ASPARTIC ACID, GLUTAMIC ACID, G [Concomitant]
     Indication: Product used for unknown indication
     Dates: start: 20210824, end: 20210830
  25. AVELOX [Concomitant]
     Active Substance: MOXIFLOXACIN HYDROCHLORIDE
     Indication: Product used for unknown indication
     Dates: start: 20210728, end: 20210802
  26. NOVALGIN (METAMIZOLE SODIUM) [Concomitant]
     Active Substance: METAMIZOLE SODIUM
     Indication: Product used for unknown indication
     Dates: start: 20210806, end: 20210806
  27. DIBUCAINE HYDROCHLORIDE\PREDNISOLONE [Concomitant]
     Active Substance: DIBUCAINE HYDROCHLORIDE\PREDNISOLONE
     Indication: Product used for unknown indication
     Dates: start: 20210826
  28. LASIX [Concomitant]
     Active Substance: FUROSEMIDE
     Indication: Product used for unknown indication
     Dates: start: 20210619
  29. LASIX [Concomitant]
     Active Substance: FUROSEMIDE
     Dates: start: 20210814, end: 20210817
  30. MOXIFLOXACIN [Concomitant]
     Active Substance: MOXIFLOXACIN
     Indication: Product used for unknown indication
     Dates: start: 20210804, end: 20210805
  31. TRAMADOL HYDROCHLORIDE [Concomitant]
     Active Substance: TRAMADOL HYDROCHLORIDE
     Indication: Product used for unknown indication
     Dates: start: 20210806, end: 20210806
  32. HYALURONATE SODIUM\TREHALOSE [Concomitant]
     Active Substance: HYALURONATE SODIUM\TREHALOSE
     Indication: Product used for unknown indication
     Dates: start: 20210406
  33. ACETAMINOPHEN [Concomitant]
     Active Substance: ACETAMINOPHEN
     Indication: Product used for unknown indication
     Dates: start: 20210621
  34. HUMAN IMMUNOGLOBULIN G [Concomitant]
     Active Substance: HUMAN IMMUNOGLOBULIN G
     Indication: Product used for unknown indication
     Dates: start: 20210818, end: 20210818
  35. COLISTIN SULFATE [Concomitant]
     Active Substance: COLISTIN SULFATE
     Indication: Product used for unknown indication
     Dates: start: 20210804, end: 20210820
  36. LIDOCAINE HYDROCHLORIDE [Concomitant]
     Active Substance: LIDOCAINE HYDROCHLORIDE
     Indication: Product used for unknown indication
     Dosage: 2 PERCENT
     Dates: start: 20210805, end: 20210805
  37. LIDOCAINE [Concomitant]
     Active Substance: LIDOCAINE
     Indication: Product used for unknown indication
     Dosage: 0.08 PERCENT
     Dates: start: 20210822
  38. OXYMETAZOLINE HYDROCHLORIDE [Concomitant]
     Active Substance: OXYMETAZOLINE HYDROCHLORIDE
     Indication: Product used for unknown indication
     Dates: start: 20210810, end: 20210810
  39. FILGRASTIM [Concomitant]
     Active Substance: FILGRASTIM
     Indication: Product used for unknown indication
     Dates: start: 20210822, end: 20210829
  40. ACTOSOLV [Concomitant]
     Indication: Product used for unknown indication
     Dates: start: 20210805, end: 20210805
  41. FLUCONAZOLE [Concomitant]
     Active Substance: FLUCONAZOLE
     Indication: Product used for unknown indication
     Dates: start: 20210406, end: 20210830
  42. AUGMENTIN [Concomitant]
     Active Substance: AMOXICILLIN\CLAVULANATE POTASSIUM
     Indication: Product used for unknown indication
     Dates: start: 20210628, end: 20210707
  43. SODIUM CHLORIDE [Concomitant]
     Active Substance: SODIUM CHLORIDE
     Indication: Product used for unknown indication
     Dates: start: 20210821
  44. SULFAMETHOXAZOLE\TRIMETHOPRIM [Concomitant]
     Active Substance: SULFAMETHOXAZOLE\TRIMETHOPRIM
     Indication: Product used for unknown indication
     Dates: start: 202012, end: 20210827
  45. ZYRTEC [Concomitant]
     Active Substance: CETIRIZINE HYDROCHLORIDE
     Indication: Product used for unknown indication
     Route: 048
     Dates: start: 20210701
  46. ZYRTEC [Concomitant]
     Active Substance: CETIRIZINE HYDROCHLORIDE
     Dates: start: 20210616
  47. INDERM [Concomitant]
     Indication: Product used for unknown indication
     Dates: start: 20210823
  48. OMEPRAZOLE [Concomitant]
     Active Substance: OMEPRAZOLE
     Indication: Product used for unknown indication
     Dates: start: 20210329, end: 20210824
  49. CHLORHEXIDINE GLUCONATE [Concomitant]
     Active Substance: CHLORHEXIDINE GLUCONATE
     Indication: Product used for unknown indication
     Dosage: 0.05 PERCENT
     Dates: start: 20210813
  50. ZOVIRAX [Concomitant]
     Active Substance: ACYCLOVIR
     Indication: Product used for unknown indication
     Dates: start: 202012
  51. FLUTICASONE FUROATE [Concomitant]
     Active Substance: FLUTICASONE FUROATE
     Indication: Product used for unknown indication
     Dates: start: 20210621
  52. ONDANSETRON [Concomitant]
     Active Substance: ONDANSETRON
     Indication: Product used for unknown indication
     Dates: start: 20210406, end: 20210820
  53. ARACHIS HYPOGAEA OIL [Concomitant]
     Indication: Product used for unknown indication
     Dates: start: 20210811, end: 20210811
  54. ALIZAPRIDE HYDROCHLORIDE [Concomitant]
     Active Substance: ALIZAPRIDE HYDROCHLORIDE
     Indication: Product used for unknown indication
     Dates: start: 20210812, end: 20210825
  55. PANTOMED [Concomitant]
     Indication: Product used for unknown indication
     Dates: start: 20210824, end: 20210829
  56. MEDROL [Concomitant]
     Active Substance: METHYLPREDNISOLONE
     Indication: Product used for unknown indication
     Route: 048
     Dates: start: 20210506, end: 20210506

REACTIONS (1)
  - Neutropenia [Recovered/Resolved]

NARRATIVE: CASE EVENT DATE: 20210804
